FAERS Safety Report 6446434-5 (Version None)
Quarter: 2009Q4

REPORT INFORMATION
  Report Type: 
  Country: None (occurrence: None)
  Receive Date: 20091119
  Receipt Date: 20091109
  Transmission Date: 20100525
  Serious: Yes (Hospitalization)
  Sender: FDA-Public Use
  Company Number: PHHY2009IT49441

PATIENT
  Sex: Female

DRUGS (2)
  1. VOLTAREN [Suspect]
     Indication: PAIN
     Dosage: 50 MG, FOR ONE DAY
     Route: 048
     Dates: start: 20091028, end: 20091028
  2. SEROPRAM [Concomitant]
     Dosage: 20 MG, UNK
     Route: 048

REACTIONS (4)
  - ASTHENIA [None]
  - MUSCULOSKELETAL STIFFNESS [None]
  - PARAESTHESIA [None]
  - SKIN REACTION [None]
